FAERS Safety Report 8427171-4 (Version None)
Quarter: 2012Q2

REPORT INFORMATION
  Report Type: 
  Country: None (occurrence: None)
  Receive Date: 20120611
  Receipt Date: 20120531
  Transmission Date: 20120825
  Serious: Yes (Other)
  Sender: FDA-Public Use
  Company Number: CA-JNJFOC-20120504827

PATIENT
  Sex: Male
  Weight: 102 kg

DRUGS (11)
  1. RAMIPRIL [Concomitant]
     Route: 065
  2. PREDNISONE TAB [Concomitant]
     Route: 065
  3. CRESTOR [Concomitant]
     Route: 065
  4. REMICADE [Suspect]
     Indication: CROHN'S DISEASE
     Route: 042
  5. METOPROLOL [Concomitant]
     Route: 065
  6. NORTRIPTYLINE HCL [Concomitant]
     Route: 065
  7. AMLODIPINE [Concomitant]
     Route: 065
  8. PANTOPRAZOLE SODIUM [Concomitant]
     Route: 065
  9. HYDROMORPHONE HCL [Concomitant]
     Route: 065
  10. ASPIRIN [Concomitant]
     Route: 065
  11. REMICADE [Suspect]
     Route: 042
     Dates: start: 20120420

REACTIONS (2)
  - VOMITING [None]
  - CROHN'S DISEASE [None]
